FAERS Safety Report 22640411 (Version 1)
Quarter: 2023Q2

REPORT INFORMATION
  Report Type: Spontaneous
  Country: ES (occurrence: ES)
  Receive Date: 20230626
  Receipt Date: 20230626
  Transmission Date: 20230722
  Serious: Yes (Disabling)
  Sender: FDA-Public Use
  Company Number: ES-TEVA-2023-ES-2896833

PATIENT
  Age: 50 Year
  Sex: Female

DRUGS (1)
  1. ATORVASTATIN [Suspect]
     Active Substance: ATORVASTATIN
     Indication: Blood cholesterol increased
     Dosage: 20 MG
     Route: 048
     Dates: start: 202209

REACTIONS (5)
  - Vulvovaginal pain [Recovered/Resolved]
  - Gait disturbance [Recovered/Resolved]
  - Fear [Recovered/Resolved]
  - Pelvic pain [Unknown]
  - Malaise [Unknown]

NARRATIVE: CASE EVENT DATE: 20220901
